FAERS Safety Report 12564926 (Version 1)
Quarter: 2016Q3

REPORT INFORMATION
  Report Type: Other
  Country: GB (occurrence: GB)
  Receive Date: 20160718
  Receipt Date: 20160718
  Transmission Date: 20161109
  Serious: Yes (Other)
  Sender: FDA-Public Use
  Company Number: GB-APOTEX-2008AP000225

PATIENT
  Age: 30 Year
  Sex: Male

DRUGS (10)
  1. EFFEXOR [Concomitant]
     Active Substance: VENLAFAXINE HYDROCHLORIDE
     Indication: PRODUCT USED FOR UNKNOWN INDICATION
     Route: 065
     Dates: start: 20020314
  2. CIPRAMIL                           /00582602/ [Concomitant]
     Active Substance: CITALOPRAM HYDROBROMIDE
     Indication: PRODUCT USED FOR UNKNOWN INDICATION
     Dosage: 20 MG, UNK
     Route: 065
     Dates: start: 20020221
  3. LUSTRAL [Concomitant]
     Active Substance: SERTRALINE HYDROCHLORIDE
     Indication: PRODUCT USED FOR UNKNOWN INDICATION
     Route: 065
     Dates: start: 20030804
  4. AMITRIPTYLINE [Concomitant]
     Active Substance: AMITRIPTYLINE
     Indication: PRODUCT USED FOR UNKNOWN INDICATION
     Route: 065
     Dates: start: 20020909
  5. PAROXETINE. [Suspect]
     Active Substance: PAROXETINE
     Indication: ANXIETY
     Dosage: 20 MG, QD
     Route: 065
     Dates: start: 20000131, end: 20011129
  6. PAXIL [Suspect]
     Active Substance: PAROXETINE HYDROCHLORIDE
     Indication: ANXIETY
     Dosage: 20 MG, UNK
     Route: 065
     Dates: start: 20031103
  7. PROZAC [Concomitant]
     Active Substance: FLUOXETINE HYDROCHLORIDE
     Indication: PRODUCT USED FOR UNKNOWN INDICATION
     Route: 065
     Dates: start: 20030905
  8. PAXIL [Suspect]
     Active Substance: PAROXETINE HYDROCHLORIDE
     Indication: DEPRESSION
  9. AMITRIPTYLINE [Concomitant]
     Active Substance: AMITRIPTYLINE
     Dosage: INCREASED TO 75MG
     Route: 065
  10. PAROXETINE. [Suspect]
     Active Substance: PAROXETINE
     Indication: DEPRESSION
     Dosage: UNK
     Route: 065
     Dates: start: 19991206

REACTIONS (39)
  - Personality change [Unknown]
  - Disorientation [Unknown]
  - Paraesthesia [Unknown]
  - Emotional disorder [Unknown]
  - Hypoaesthesia [Unknown]
  - Feeling drunk [Unknown]
  - Libido decreased [Unknown]
  - Serotonin syndrome [Unknown]
  - Visual impairment [Unknown]
  - Dizziness postural [Unknown]
  - Thirst [Unknown]
  - Depression [Unknown]
  - Insomnia [Unknown]
  - Paranoia [Unknown]
  - Restless legs syndrome [Unknown]
  - Tinnitus [Unknown]
  - Aggression [Unknown]
  - Derealisation [Unknown]
  - Arthralgia [Unknown]
  - Mania [Unknown]
  - Nausea [Unknown]
  - Pain in extremity [Unknown]
  - Palpitations [Unknown]
  - Hyperhidrosis [Unknown]
  - Agitation [Unknown]
  - Abnormal behaviour [Unknown]
  - Dizziness exertional [Unknown]
  - Rash [Unknown]
  - Gingival pain [Unknown]
  - Suicidal ideation [Unknown]
  - Withdrawal syndrome [Unknown]
  - Lethargy [Unknown]
  - Decreased appetite [Unknown]
  - Diarrhoea [Unknown]
  - Headache [Unknown]
  - Irritability [Unknown]
  - Tremor [Unknown]
  - Weight decreased [Unknown]
  - Influenza like illness [Unknown]

NARRATIVE: CASE EVENT DATE: 20011201
